FAERS Safety Report 17835805 (Version 1)
Quarter: 2020Q2

REPORT INFORMATION
  Report Type: Spontaneous
  Country: CN (occurrence: CN)
  Receive Date: 20200528
  Receipt Date: 20200528
  Transmission Date: 20200714
  Serious: Yes (Disabling)
  Sender: FDA-Public Use
  Company Number: CN-BAXTER-2020BAX010927

PATIENT
  Age: 23 Year
  Sex: Male
  Weight: 66 kg

DRUGS (2)
  1. ENDOXAN [Suspect]
     Active Substance: CYCLOPHOSPHAMIDE
     Indication: HENOCH-SCHONLEIN PURPURA
     Dosage: 0.9% NS 100 ML + CYCLOPHOSPHAMIDE 0.4 G
     Route: 041
     Dates: start: 20200420, end: 20200420
  2. 0.9% SODIUM CHLORIDE INJECTION [Suspect]
     Active Substance: SODIUM CHLORIDE
     Indication: MEDICATION DILUTION
     Dosage: 0.9% NS 100 ML + CYCLOPHOSPHAMIDE 0.4 G
     Route: 041
     Dates: start: 20200420, end: 20200420

REACTIONS (1)
  - Liver injury [Recovered/Resolved]

NARRATIVE: CASE EVENT DATE: 20200425
